FAERS Safety Report 12192043 (Version 2)
Quarter: 2016Q1

REPORT INFORMATION
  Report Type: Spontaneous
  Country: NL (occurrence: NL)
  Receive Date: 20160318
  Receipt Date: 20160318
  Transmission Date: 20160526
  Serious: Yes (Hospitalization)
  Sender: FDA-Public Use
  Company Number: PHHY2016NL033457

PATIENT
  Sex: Female
  Weight: 70 kg

DRUGS (4)
  1. VALSARTAN. [Suspect]
     Active Substance: VALSARTAN
     Indication: HYPERTENSION
     Dosage: 1 DF, QD
     Route: 065
     Dates: start: 2013
  2. BARNIDIPINE HYDROCHLORIDE [Interacting]
     Active Substance: BARNIDIPINE HYDROCHLORIDE
     Indication: HYPERTENSION
     Dosage: 15 MG, QD
     Route: 065
     Dates: start: 201402
  3. HYDROCHLOROTHIAZIDE. [Interacting]
     Active Substance: HYDROCHLOROTHIAZIDE
     Indication: HYPERTENSION
     Dosage: 1 DF, QD
     Route: 065
     Dates: start: 2004
  4. RIVAROXABAN [Concomitant]
     Active Substance: RIVAROXABAN
     Indication: PRODUCT USED FOR UNKNOWN INDICATION
     Dosage: 1 DF, QD
     Route: 065
     Dates: start: 2014

REACTIONS (1)
  - Presyncope [Recovered/Resolved]

NARRATIVE: CASE EVENT DATE: 2014
